FAERS Safety Report 25022819 (Version 1)
Quarter: 2025Q1

REPORT INFORMATION
  Report Type: Spontaneous
  Country: IN (occurrence: IN)
  Receive Date: 20250228
  Receipt Date: 20250228
  Transmission Date: 20250408
  Serious: Yes (Other)
  Sender: MYLAN
  Company Number: IN-MYLANLABS-2025M1016316

PATIENT
  Age: 55 Year
  Sex: Female

DRUGS (5)
  1. HEPARIN [Suspect]
     Active Substance: HEPARIN SODIUM
     Indication: Jugular vein thrombosis
  2. HEPARIN [Suspect]
     Active Substance: HEPARIN SODIUM
     Indication: Subclavian vein thrombosis
  3. HEPARIN [Suspect]
     Active Substance: HEPARIN SODIUM
     Indication: Axillary vein thrombosis
  4. HEPARIN [Suspect]
     Active Substance: HEPARIN SODIUM
     Indication: Deep vein thrombosis
  5. HEPARIN [Suspect]
     Active Substance: HEPARIN SODIUM
     Indication: Vena cava thrombosis

REACTIONS (1)
  - Therapy non-responder [Unknown]

NARRATIVE: CASE EVENT DATE: 20170601
